FAERS Safety Report 4641937-8 (Version None)
Quarter: 2005Q2

REPORT INFORMATION
  Report Type: 
  Country: None (occurrence: None)
  Receive Date: 20050420
  Receipt Date: 20050401
  Transmission Date: 20051028
  Serious: Yes (Hospitalization)
  Sender: FDA-Public Use
  Company Number: US_0504115061

PATIENT
  Age: 81 Year
  Sex: Female
  Weight: 55 kg

DRUGS (2)
  1. HUMULIN 70/30 [Suspect]
  2. HUMULIN R [Suspect]

REACTIONS (3)
  - BODY HEIGHT DECREASED [None]
  - FALL [None]
  - PELVIC FRACTURE [None]
